FAERS Safety Report 6712191-8 (Version None)
Quarter: 2010Q2

REPORT INFORMATION
  Report Type: 
  Country: None (occurrence: None)
  Receive Date: 20100505
  Receipt Date: 20100427
  Transmission Date: 20101027
  Serious: Yes (Other)
  Sender: FDA-Public Use
  Company Number: FR-GILEAD-2010-0028764

PATIENT
  Age: 46 Year
  Sex: Male

DRUGS (3)
  1. VIREAD [Suspect]
     Indication: HEPATITIS B
     Dates: start: 20090101
  2. HEPSERA [Suspect]
     Indication: HEPATITIS B
     Dates: end: 20090101
  3. ZEFFIX [Concomitant]
     Indication: HEPATITIS B

REACTIONS (3)
  - ARTHRALGIA [None]
  - SEPTIC NECROSIS [None]
  - THERAPEUTIC RESPONSE DECREASED [None]
